FAERS Safety Report 8506986-8 (Version None)
Quarter: 2012Q3

REPORT INFORMATION
  Report Type: 
  Country: None (occurrence: None)
  Receive Date: 20120712
  Receipt Date: 20120708
  Transmission Date: 20120928
  Serious: No
  Sender: FDA-Public Use
  Company Number: US-BAYER-2012-069335

PATIENT

DRUGS (3)
  1. SODIUM BICARBONATE [Suspect]
  2. IBUPROFEN [Concomitant]
  3. ALEVE (CAPLET) [Suspect]

REACTIONS (1)
  - DRUG INEFFECTIVE [None]
